FAERS Safety Report 4976334-9 (Version None)
Quarter: 2006Q2

REPORT INFORMATION
  Report Type: 
  Country: None (occurrence: None)
  Receive Date: 20060412
  Receipt Date: 20060404
  Transmission Date: 20061013
  Serious: Yes (Hospitalization)
  Sender: FDA-Public Use
  Company Number: 2006BI004220

PATIENT
  Age: 33 Year
  Sex: Female
  Weight: 113.3993 kg

DRUGS (3)
  1. AVONEX [Suspect]
     Indication: MULTIPLE SCLEROSIS
     Dosage: 30 UG; QW; IM
     Route: 030
     Dates: start: 20020101, end: 20050301
  2. AVONEX [Suspect]
     Indication: MULTIPLE SCLEROSIS
     Dosage: 30 UG; QW; IM
     Route: 030
     Dates: start: 20050301
  3. COPAXONE [Concomitant]

REACTIONS (3)
  - ANKLE FRACTURE [None]
  - INFLUENZA LIKE ILLNESS [None]
  - OPTIC NEURITIS [None]
